FAERS Safety Report 21088647 (Version 5)
Quarter: 2024Q4

REPORT INFORMATION
  Report Type: Report from Study
  Country: JP (occurrence: JP)
  Receive Date: 20220715
  Receipt Date: 20241204
  Transmission Date: 20250114
  Serious: Yes (Other)
  Sender: GILEAD
  Company Number: JP-JNJFOC-20210205059

PATIENT
  Age: 53 Year
  Sex: Male

DRUGS (2)
  1. EMTRICITABINE\RILPIVIRINE HYDROCHLORIDE\TENOFOVIR ALAFENAMIDE FUMARATE [Suspect]
     Active Substance: EMTRICITABINE\RILPIVIRINE HYDROCHLORIDE\TENOFOVIR ALAFENAMIDE FUMARATE
     Indication: HIV infection
     Dosage: 1 DOSAGE FORM, QD
     Route: 048
     Dates: start: 20190222
  2. ETIZOLAM [Concomitant]
     Active Substance: ETIZOLAM
     Indication: Palpitations
     Dosage: DOSE UNKNOWN
     Route: 048
     Dates: start: 20170721, end: 20230415

REACTIONS (3)
  - Blood triglycerides increased [Not Recovered/Not Resolved]
  - Gamma-glutamyltransferase increased [Recovered/Resolved]
  - Hyperuricaemia [Recovering/Resolving]

NARRATIVE: CASE EVENT DATE: 20190531
